FAERS Safety Report 4906792-7 (Version None)
Quarter: 2006Q1

REPORT INFORMATION
  Report Type: 
  Country: None (occurrence: None)
  Receive Date: 20060207
  Receipt Date: 20060124
  Transmission Date: 20060701
  Serious: Yes (Hospitalization)
  Sender: FDA-Public Use
  Company Number: FR200601004386

PATIENT
  Age: 34 Year
  Sex: Male

DRUGS (2)
  1. ZYPREXA [Suspect]
     Indication: REACTIVE PSYCHOSIS
     Dosage: 15 MG, DAILY (1/D), ORAL
     Route: 048
     Dates: start: 20020101
  2. ATARAX [Concomitant]

REACTIONS (5)
  - COAGULOPATHY [None]
  - DEEP VEIN THROMBOSIS [None]
  - HYPERCHOLESTEROLAEMIA [None]
  - HYPERTRIGLYCERIDAEMIA [None]
  - WEIGHT INCREASED [None]
